FAERS Safety Report 20591994 (Version 4)
Quarter: 2022Q2

REPORT INFORMATION
  Report Type: Report from Study
  Country: US (occurrence: None)
  Receive Date: 20220314
  Receipt Date: 20220413
  Transmission Date: 20220721
  Serious: Yes (Hospitalization)
  Sender: FDA-Public Use
  Company Number: US-ROCHE-3018211

PATIENT
  Age: 50 Year
  Sex: Male
  Weight: 80.2 kg

DRUGS (27)
  1. CEVOSTAMAB [Suspect]
     Active Substance: CEVOSTAMAB
     Indication: Plasma cell myeloma
     Dosage: DOSE LAST STUDY DRUG ADMIN PRIOR AE IS 3.6 MG?START DATE OF MOST RECENT DOSE OF STUDY DRUG PRIOR TO
     Route: 042
     Dates: start: 20220131
  2. TOCILIZUMAB [Suspect]
     Active Substance: TOCILIZUMAB
     Indication: Plasma cell myeloma
     Route: 042
     Dates: start: 20220131, end: 20220131
  3. DEXAMETHASONE [Concomitant]
     Active Substance: DEXAMETHASONE
     Indication: Premedication
     Dosage: ONGOING NO
     Route: 042
     Dates: start: 20110131, end: 20110131
  4. DEXAMETHASONE [Concomitant]
     Active Substance: DEXAMETHASONE
     Indication: Spinal cord compression
     Route: 042
     Dates: start: 20220322
  5. DEXAMETHASONE [Concomitant]
     Active Substance: DEXAMETHASONE
     Route: 048
     Dates: start: 20220317
  6. EPINEPHRINE [Concomitant]
     Active Substance: EPINEPHRINE
     Indication: Anaphylactic reaction
     Dosage: ONGOING YES?GIVEN FOR PROPHYLAXIS NO
     Route: 030
     Dates: start: 20220131
  7. ONDANSETRON [Concomitant]
     Active Substance: ONDANSETRON
     Indication: Nausea
     Dosage: ONGOING YES ?GIVEN FOR PROPHYLAXIS NO
     Route: 048
     Dates: start: 20220131
  8. ONDANSETRON [Concomitant]
     Active Substance: ONDANSETRON
     Indication: Vomiting
  9. PHOSPHORUS [Concomitant]
     Active Substance: PHOSPHORUS
     Indication: Hypophosphataemia
     Dosage: ONGOING NO?GIVEN FOR PROPHYLAXIS NO
     Route: 048
     Dates: start: 20220131, end: 20220201
  10. ALBUTEROL SULFATE [Concomitant]
     Active Substance: ALBUTEROL SULFATE
     Indication: Asthma
     Dosage: ONGOING YES ?GIVEN FOR PROPHYLAXIS NO
     Route: 048
     Dates: start: 1979
  11. BUPROPION [Concomitant]
     Active Substance: BUPROPION
     Indication: Depression
     Dosage: ONGOING YES ?GIVEN FOR PROPHYLAXIS NO
     Route: 048
     Dates: start: 20211001
  12. ESCITALOPRAM [Concomitant]
     Active Substance: ESCITALOPRAM OXALATE
     Indication: Depression
     Dosage: ONGOING YES ?GIVEN FOR PROPHYLAXIS NO
     Route: 048
     Dates: start: 2017
  13. FAMOTIDINE [Concomitant]
     Active Substance: FAMOTIDINE
     Indication: Gastrooesophageal reflux disease
     Dosage: ONGOING YES
     Route: 048
     Dates: start: 2019, end: 20220322
  14. SENNOSIDES [Concomitant]
     Active Substance: SENNOSIDES
     Indication: Constipation
     Dosage: ONGOING YES?GIVEN FOR PROPHYLAXIS NO
     Route: 048
     Dates: start: 20210207
  15. OXYCODONE [Concomitant]
     Active Substance: OXYCODONE
     Indication: Pain
     Dosage: ONGOING NO?GIVEN FOR PROPHYLAXIS NO
     Route: 048
     Dates: start: 20220131, end: 20220209
  16. OXYCODONE [Concomitant]
     Active Substance: OXYCODONE
     Route: 048
     Dates: start: 20220209
  17. ZARXIO [Concomitant]
     Active Substance: FILGRASTIM-SNDZ
     Route: 058
     Dates: start: 20220202, end: 20220202
  18. ACETAMINOPHEN [Concomitant]
     Active Substance: ACETAMINOPHEN
     Route: 048
     Dates: start: 20220323, end: 20220323
  19. ROBITUSSIN (GUAIFENESIN) [Concomitant]
     Active Substance: GUAIFENESIN
     Indication: Cough
     Route: 048
     Dates: start: 20220323
  20. HYDROCODONE [Concomitant]
     Active Substance: HYDROCODONE
     Indication: Cough
     Route: 048
     Dates: start: 20220323
  21. PANTOPRAZOLE [Concomitant]
     Active Substance: PANTOPRAZOLE
     Indication: Gastrooesophageal reflux disease
     Route: 048
     Dates: start: 20220323
  22. FLUTICASONE [Concomitant]
     Active Substance: FLUTICASONE
     Indication: Rhinitis allergic
     Route: 045
     Dates: start: 20220214, end: 20220322
  23. HYDROCORTISONE [Concomitant]
     Active Substance: HYDROCORTISONE
     Indication: Rash maculo-papular
     Route: 061
     Dates: start: 20220214, end: 20220322
  24. LORATADINE [Concomitant]
     Active Substance: LORATADINE
     Indication: Rhinitis allergic
     Route: 048
     Dates: start: 20220214, end: 20220323
  25. OLANZAPINE [Concomitant]
     Active Substance: OLANZAPINE
     Indication: Insomnia
     Route: 048
     Dates: start: 202110, end: 20220322
  26. OMEPRAZOLE [Concomitant]
     Active Substance: OMEPRAZOLE
     Indication: Gastrooesophageal reflux disease
     Route: 048
     Dates: start: 2016, end: 20220322
  27. AMBIEN [Concomitant]
     Active Substance: ZOLPIDEM TARTRATE
     Indication: Insomnia
     Route: 048
     Dates: start: 20220323

REACTIONS (3)
  - Pyrexia [Recovered/Resolved]
  - Cytokine release syndrome [Recovered/Resolved]
  - Cytokine release syndrome [Recovered/Resolved]

NARRATIVE: CASE EVENT DATE: 20220131
